FAERS Safety Report 9639957 (Version 1)
Quarter: 2013Q4

REPORT INFORMATION
  Report Type: Spontaneous
  Country: JP (occurrence: JP)
  Receive Date: 20131023
  Receipt Date: 20131023
  Transmission Date: 20140711
  Serious: Yes (Other)
  Sender: FDA-Public Use
  Company Number: JP-PFIZER INC-2013298131

PATIENT
  Age: 65 Year
  Sex: Male
  Weight: 83 kg

DRUGS (3)
  1. FLUOROURACIL [Suspect]
     Indication: RECTAL CANCER
     Dosage: 2700 MG, UNK
     Dates: start: 200710, end: 200806
  2. OXALIPLATIN [Suspect]
     Indication: RECTAL CANCER
     Dosage: 150 MG, UNK
     Dates: start: 200710, end: 200806
  3. LEVOLEUCOVORIN CALCIUM [Suspect]
     Indication: RECTAL CANCER
     Dosage: 350 MG, UNK
     Dates: start: 200710, end: 200806

REACTIONS (1)
  - Pulmonary tuberculosis [Recovering/Resolving]
